FAERS Safety Report 12226428 (Version 1)
Quarter: 2016Q1

REPORT INFORMATION
  Report Type: Spontaneous
  Country: EG (occurrence: EG)
  Receive Date: 20160331
  Receipt Date: 20160331
  Transmission Date: 20160526
  Serious: Yes (Hospitalization)
  Sender: FDA-Public Use
  Company Number: EG-DEP_13924_2016

PATIENT
  Sex: Female

DRUGS (1)
  1. CATAFAST (DICLOFENAC POTASSIUM) [Suspect]
     Active Substance: DICLOFENAC POTASSIUM
     Indication: DYSMENORRHOEA
     Dosage: 2 SACHETS PER DAY, THE FIRST 2 DAYS IN MENSTRUATION

REACTIONS (2)
  - Nephrolithiasis [Recovered/Resolved]
  - Blood urine present [Recovered/Resolved]

NARRATIVE: CASE EVENT DATE: 20151231
